FAERS Safety Report 7076670-9 (Version None)
Quarter: 2010Q4

REPORT INFORMATION
  Report Type: 
  Country: None (occurrence: None)
  Receive Date: 20101101
  Receipt Date: 20101026
  Transmission Date: 20110411
  Serious: No
  Sender: FDA-Public Use
  Company Number: US-PFIZER INC-2010136873

PATIENT
  Sex: Female

DRUGS (5)
  1. GEODON [Suspect]
     Dosage: UNK
  2. LIPITOR [Interacting]
     Dosage: UNK
  3. DEPAKOTE [Interacting]
     Dosage: UNK
  4. COGENTIN [Interacting]
     Dosage: UNK
  5. RISPERDAL [Interacting]
     Dosage: UNK

REACTIONS (4)
  - DRUG INTERACTION [None]
  - FATIGUE [None]
  - FEELING ABNORMAL [None]
  - IRRITABILITY [None]
